FAERS Safety Report 4794285-X (Version None)
Quarter: 2005Q4

REPORT INFORMATION
  Report Type: 
  Country: None (occurrence: None)
  Receive Date: 20051011
  Receipt Date: 20050929
  Transmission Date: 20060501
  Serious: Yes (Life-Threatening)
  Sender: FDA-Public Use
  Company Number: FR-GLAXOSMITHKLINE-B0396620A

PATIENT
  Age: 9 Year
  Sex: Male
  Weight: 27 kg

DRUGS (1)
  1. MALARONE [Suspect]
     Indication: MALARIA
     Dosage: 250MG SEE DOSAGE TEXT
     Route: 048
     Dates: start: 20050818, end: 20050820

REACTIONS (5)
  - CONVULSION [None]
  - DYSKINESIA [None]
  - HEMIPARESIS [None]
  - LOSS OF CONSCIOUSNESS [None]
  - PUPILLARY DISORDER [None]
